FAERS Safety Report 8900946 (Version 2)
Quarter: 2013Q2

REPORT INFORMATION
  Report Type: Report from Study
  Country: FR (occurrence: FR)
  Receive Date: 20121109
  Receipt Date: 20130417
  Transmission Date: 20140414
  Serious: Yes (Hospitalization)
  Sender: FDA-Public Use
  Company Number: FR-UCBSA-070513

PATIENT
  Age: 56 Year
  Sex: Female
  Weight: 92 kg

DRUGS (5)
  1. CIMZIA [Suspect]
     Indication: RHEUMATOID ARTHRITIS
     Dosage: LAST INJECTION ON 20-OCT-2012
     Route: 058
     Dates: start: 20121006, end: 2012
  2. ARAVA [Concomitant]
     Indication: RHEUMATOID ARTHRITIS
     Dosage: DAILY DOSE: 20 MG
     Route: 048
     Dates: start: 200111, end: 20121106
  3. CORTANCYL [Concomitant]
     Indication: RHEUMATOID ARTHRITIS
     Dosage: DAILY DOSE : 5 MG
     Route: 048
     Dates: start: 2001
  4. CRESTOR [Concomitant]
     Indication: HYPERCHOLESTEROLAEMIA
     Dosage: DAILY DOSE: 5 MG
     Route: 048
     Dates: end: 20121105
  5. LOPRESSOR [Concomitant]
     Indication: HYPERTENSION
     Route: 048

REACTIONS (1)
  - Hepatitis cholestatic [Recovered/Resolved]
